FAERS Safety Report 6524499-X (Version None)
Quarter: 2010Q1

REPORT INFORMATION
  Report Type: 
  Country: None (occurrence: None)
  Receive Date: 20100104
  Receipt Date: 20091221
  Transmission Date: 20100710
  Serious: Yes (Hospitalization, Other)
  Sender: FDA-Public Use
  Company Number: US-ELI_LILLY_AND_COMPANY-US200912005275

PATIENT
  Sex: Female

DRUGS (8)
  1. FORTEO [Suspect]
     Indication: OSTEOPOROSIS
     Dosage: UNK, DAILY (1/D)
     Dates: start: 20040101
  2. FORTEO [Suspect]
     Dosage: UNK, DAILY (1/D)
     Dates: start: 20090227
  3. ZOCOR [Concomitant]
  4. NIOSPAN [Concomitant]
  5. ASPIRIN [Concomitant]
  6. WARFARIN [Concomitant]
  7. METOPROLOL TARTRATE [Concomitant]
  8. NITROGLYCERIN [Concomitant]

REACTIONS (4)
  - ARTHRALGIA [None]
  - DEVICE OCCLUSION [None]
  - MYOCARDIAL INFARCTION [None]
  - THROMBOSIS [None]
